FAERS Safety Report 25146214 (Version 1)
Quarter: 2025Q2

REPORT INFORMATION
  Report Type: Spontaneous
  Country: US (occurrence: US)
  Receive Date: 20250401
  Receipt Date: 20250401
  Transmission Date: 20250717
  Serious: No
  Sender: AMGEN
  Company Number: US-AMGEN-USASP2025061615

PATIENT
  Age: 68 Year
  Sex: Female

DRUGS (5)
  1. OTEZLA [Suspect]
     Active Substance: APREMILAST
     Indication: Psoriasis
     Dosage: 30 MILLIGRAM, BID
     Route: 048
     Dates: start: 20250106
  2. ESTRADIOL [Concomitant]
     Active Substance: ESTRADIOL
  3. PANTOPRAZOLE [Concomitant]
     Active Substance: PANTOPRAZOLE
  4. VITAMIN D [Concomitant]
     Active Substance: VITAMIN D NOS
  5. OCUVITE [Concomitant]
     Active Substance: VITAMINS

REACTIONS (1)
  - Larynx irritation [Unknown]

NARRATIVE: CASE EVENT DATE: 20250101
